FAERS Safety Report 12280742 (Version 1)
Quarter: 2016Q2

REPORT INFORMATION
  Report Type: Spontaneous
  Country: US (occurrence: None)
  Receive Date: 20160418
  Receipt Date: 20160418
  Transmission Date: 20160815
  Serious: No
  Sender: FDA-Public Use
  Company Number: None

PATIENT
  Sex: Female

DRUGS (1)
  1. ENBREL [Suspect]
     Active Substance: ETANERCEPT
     Indication: PRODUCT USED FOR UNKNOWN INDICATION
     Dosage: 50MG EVERY 1 TO 2 WEEKS SUBCUTANEOUS
     Route: 058
     Dates: start: 20140619

REACTIONS (2)
  - Injection site haemorrhage [None]
  - Wrong technique in product usage process [None]
